FAERS Safety Report 23285827 (Version 2)
Quarter: 2023Q4

REPORT INFORMATION
  Report Type: Report from Study
  Country: US (occurrence: US)
  Receive Date: 20231212
  Receipt Date: 20231212
  Transmission Date: 20240110
  Serious: Yes (Death)
  Sender: FDA-Public Use
  Company Number: US-ABBVIE-5279875

PATIENT
  Sex: Female

DRUGS (4)
  1. VENCLEXTA [Suspect]
     Active Substance: VENETOCLAX
     Indication: Myelodysplastic syndrome with multilineage dysplasia
     Dosage: 100 MILLIGRAM?DAY-1?TAKE 1 TABLET BY MOUTH
     Route: 048
  2. VENCLEXTA [Suspect]
     Active Substance: VENETOCLAX
     Indication: Myelodysplastic syndrome with multilineage dysplasia
     Dosage: DAY 2?TAKE 2 TABLET(S) BY MOUTH (200MG)?FORM STRENGTH-100MG
     Route: 048
  3. VENCLEXTA [Suspect]
     Active Substance: VENETOCLAX
     Indication: Myelodysplastic syndrome with multilineage dysplasia
     Dosage: 4 TABLETS BY MOUTH OF STRENGHT 100 MG ONCE DAILY FOR 1 WEEK ON THEN THREE WEEKS OFF
     Route: 048
  4. AZACITIDINE [Concomitant]
     Active Substance: AZACITIDINE
     Indication: Product used for unknown indication
     Route: 042

REACTIONS (3)
  - Death [Fatal]
  - Off label use [Unknown]
  - Limb injury [Unknown]
